FAERS Safety Report 15329314 (Version 1)
Quarter: 2018Q3

REPORT INFORMATION
  Report Type: Spontaneous
  Country: TR (occurrence: TR)
  Receive Date: 20180829
  Receipt Date: 20180829
  Transmission Date: 20181010
  Serious: Yes (Other)
  Sender: FDA-Public Use
  Company Number: TR-LPDUSPRD-20181554

PATIENT
  Age: 44 Year
  Sex: Female

DRUGS (1)
  1. FERINJECT [Suspect]
     Active Substance: FERRIC CARBOXYMALTOSE
     Dosage: TWO VIALS OF FERINJECT(500 MG)
     Route: 042
     Dates: start: 20180731

REACTIONS (9)
  - Swelling [Unknown]
  - Rash [Unknown]
  - Depressed level of consciousness [Unknown]
  - Pyrexia [Unknown]
  - Chest discomfort [Unknown]
  - Hypotension [Unknown]
  - Skin discolouration [Unknown]
  - Dyspnoea [Unknown]
  - Headache [Unknown]

NARRATIVE: CASE EVENT DATE: 2018
